FAERS Safety Report 5749531-2 (Version None)
Quarter: 2008Q2

REPORT INFORMATION
  Report Type: 
  Country: None (occurrence: None)
  Receive Date: 20080527
  Receipt Date: 20080523
  Transmission Date: 20081010
  Serious: Yes (Other)
  Sender: FDA-Public Use
  Company Number: B0522011A

PATIENT
  Age: 24 Year
  Sex: Female

DRUGS (3)
  1. PAXIL [Suspect]
     Indication: BULIMIA NERVOSA
     Dosage: 20MG PER DAY
     Route: 048
  2. PAXIL [Suspect]
     Dosage: 30MG PER DAY
     Route: 048
  3. PAXIL [Suspect]
     Dosage: 10MG PER DAY
     Route: 048

REACTIONS (1)
  - SUICIDAL IDEATION [None]
